FAERS Safety Report 12929802 (Version 4)
Quarter: 2017Q2

REPORT INFORMATION
  Report Type: Report from Study
  Country: DE (occurrence: DE)
  Receive Date: 20161110
  Receipt Date: 20170628
  Transmission Date: 20170830
  Serious: Yes (Other)
  Sender: FDA-Public Use
  Company Number: DE-UCBSA-2016042203

PATIENT

DRUGS (5)
  1. LACOSAMIDE. [Suspect]
     Active Substance: LACOSAMIDE
     Indication: EPILEPSY
     Dosage: 200 MG DAILY
  2. LACOSAMIDE. [Suspect]
     Active Substance: LACOSAMIDE
     Dosage: 50 MG, 2X/DAY (BID)
  3. LAMOTRIGINE. [Concomitant]
     Active Substance: LAMOTRIGINE
     Indication: PRODUCT USED FOR UNKNOWN INDICATION
     Dosage: UNK
  4. KEPPRA [Suspect]
     Active Substance: LEVETIRACETAM
     Indication: PRODUCT USED FOR UNKNOWN INDICATION
     Dosage: 2000 MG
  5. MIRTAZAPINE. [Concomitant]
     Active Substance: MIRTAZAPINE
     Indication: PRODUCT USED FOR UNKNOWN INDICATION

REACTIONS (18)
  - Cardiac disorder [Unknown]
  - Panic attack [Unknown]
  - Hunger [Unknown]
  - Anxiety [Unknown]
  - Sleep disorder [Unknown]
  - Memory impairment [Unknown]
  - Dizziness [Unknown]
  - Hippocampal sclerosis [Unknown]
  - Diplopia [Unknown]
  - Speech disorder [Unknown]
  - Paraesthesia [Unknown]
  - Unevaluable event [Unknown]
  - Adverse drug reaction [Not Recovered/Not Resolved]
  - Respiratory disorder [Unknown]
  - Depression [Unknown]
  - Sensory loss [Unknown]
  - Affective disorder [Unknown]
  - Aggression [Unknown]
